FAERS Safety Report 12744319 (Version 1)
Quarter: 2016Q3

REPORT INFORMATION
  Report Type: Spontaneous
  Country: US (occurrence: US)
  Receive Date: 20160914
  Receipt Date: 20160914
  Transmission Date: 20161109
  Serious: Yes (Hospitalization, Other)
  Sender: FDA-Public Use
  Company Number: US-ASTRAZENECA-2016SE95955

PATIENT
  Sex: Male

DRUGS (4)
  1. LACTULOSE. [Concomitant]
     Active Substance: LACTULOSE
     Route: 048
  2. ABILIFY [Suspect]
     Active Substance: ARIPIPRAZOLE
     Route: 048
  3. SEROQUEL [Suspect]
     Active Substance: QUETIAPINE FUMARATE
     Indication: BIPOLAR DISORDER
     Dosage: EVERY MORNING
     Route: 048
     Dates: start: 2012
  4. DEPAKOTE [Suspect]
     Active Substance: DIVALPROEX SODIUM
     Dosage: 100.0MG UNKNOWN
     Route: 048

REACTIONS (13)
  - Tardive dyskinesia [Not Recovered/Not Resolved]
  - Vision blurred [Unknown]
  - Memory impairment [Unknown]
  - Gait disturbance [Unknown]
  - Back pain [Unknown]
  - Neck pain [Unknown]
  - Spinal pain [Unknown]
  - Thyroid disorder [Unknown]
  - Drug hypersensitivity [Unknown]
  - Depression [Unknown]
  - Attention deficit/hyperactivity disorder [Unknown]
  - Hepatic failure [Unknown]
  - Oppositional defiant disorder [Unknown]
